FAERS Safety Report 12779239 (Version 1)
Quarter: 2016Q3

REPORT INFORMATION
  Report Type: Spontaneous
  Country: US (occurrence: US)
  Receive Date: 20160926
  Receipt Date: 20160926
  Transmission Date: 20161109
  Serious: No
  Sender: FDA-Public Use
  Company Number: US-JAZZ-2016-US-011299

PATIENT
  Sex: Female

DRUGS (10)
  1. HERBAL [Concomitant]
  2. LEVAQUIN [Concomitant]
     Active Substance: LEVOFLOXACIN
  3. VITAMIN B12 [Concomitant]
     Active Substance: CYANOCOBALAMIN
  4. NUVIGIL [Concomitant]
     Active Substance: ARMODAFINIL
  5. XYREM [Suspect]
     Active Substance: SODIUM OXYBATE
     Dosage: 3 G, BID
     Route: 048
     Dates: start: 201605
  6. OMEPRAZOLE. [Concomitant]
     Active Substance: OMEPRAZOLE
  7. SULFASALAZINE. [Concomitant]
     Active Substance: SULFASALAZINE
  8. TYLENOL EXTRA STRENGTH [Concomitant]
     Active Substance: ACETAMINOPHEN
  9. XYREM [Suspect]
     Active Substance: SODIUM OXYBATE
     Indication: NARCOLEPSY
     Dosage: 2.25 G, BID
     Route: 048
     Dates: start: 201604, end: 201605
  10. ZYRTEC [Concomitant]
     Active Substance: CETIRIZINE HYDROCHLORIDE

REACTIONS (1)
  - Inappropriate schedule of drug administration [Unknown]
